FAERS Safety Report 11416074 (Version 1)
Quarter: 2015Q3

REPORT INFORMATION
  Report Type: Spontaneous
  Country: US (occurrence: US)
  Receive Date: 20150825
  Receipt Date: 20150825
  Transmission Date: 20151125
  Serious: No
  Sender: FDA-Public Use
  Company Number: US-TEVA-534512USA

PATIENT
  Age: 58 Year
  Sex: Female
  Weight: 71.65 kg

DRUGS (11)
  1. BENADRYL [Concomitant]
     Active Substance: DIPHENHYDRAMINE HYDROCHLORIDE
     Dates: start: 201206
  2. DOXEPIN [Concomitant]
     Active Substance: DOXEPIN
     Dates: start: 201206
  3. FEXOFENADINE [Suspect]
     Active Substance: FEXOFENADINE\FEXOFENADINE HYDROCHLORIDE
     Dosage: 360 MILLIGRAM DAILY;
     Route: 048
     Dates: start: 2014, end: 201412
  4. ALLEGRA [Concomitant]
     Active Substance: FEXOFENADINE HYDROCHLORIDE
  5. SYNTHROID [Concomitant]
     Active Substance: LEVOTHYROXINE SODIUM
     Dates: start: 1965
  6. PEPCID [Concomitant]
     Active Substance: FAMOTIDINE
     Dates: start: 201206
  7. ZAFIRLUKAST. [Concomitant]
     Active Substance: ZAFIRLUKAST
     Dates: start: 2013
  8. FLUTICASONE [Concomitant]
     Active Substance: FLUTICASONE\FLUTICASONE PROPIONATE
  9. FEXOFENADINE [Suspect]
     Active Substance: FEXOFENADINE\FEXOFENADINE HYDROCHLORIDE
     Indication: URTICARIA
     Dosage: 360 MILLIGRAM DAILY;
     Route: 048
     Dates: start: 201206
  10. ZYRTEC [Concomitant]
     Active Substance: CETIRIZINE HYDROCHLORIDE
     Dates: start: 20141222
  11. EPIPEN [Concomitant]
     Active Substance: EPINEPHRINE
     Dates: start: 201206

REACTIONS (3)
  - Off label use [Unknown]
  - Drug ineffective for unapproved indication [Unknown]
  - Incorrect dose administered [Unknown]

NARRATIVE: CASE EVENT DATE: 201206
